FAERS Safety Report 11490465 (Version 1)
Quarter: 2015Q3

REPORT INFORMATION
  Report Type: Spontaneous
  Country: US (occurrence: US)
  Receive Date: 20150910
  Receipt Date: 20150910
  Transmission Date: 20151125
  Serious: Yes (Other)
  Sender: FDA-Public Use
  Company Number: US-ASTRAZENECA-2015SE85248

PATIENT
  Age: 56 Year
  Sex: Male
  Weight: 90.7 kg

DRUGS (3)
  1. NASACORT [Concomitant]
     Active Substance: TRIAMCINOLONE ACETONIDE
     Indication: ASTHMA
     Dates: start: 2006
  2. PULMICORT FLEXHALER [Suspect]
     Active Substance: BUDESONIDE
     Route: 055
  3. PREDNISONE. [Concomitant]
     Active Substance: PREDNISONE
     Indication: ASTHMA

REACTIONS (7)
  - Sjogren^s syndrome [Unknown]
  - Asthma [Unknown]
  - Fibromyalgia [Unknown]
  - Fatigue [Unknown]
  - Circumstance or information capable of leading to medication error [Unknown]
  - Systemic lupus erythematosus [Unknown]
  - Cough [Unknown]

NARRATIVE: CASE EVENT DATE: 2010
